FAERS Safety Report 16714582 (Version 2)
Quarter: 2019Q4

REPORT INFORMATION
  Report Type: Report from Study
  Country: US (occurrence: US)
  Receive Date: 20190819
  Receipt Date: 20191001
  Transmission Date: 20200122
  Serious: Yes (Hospitalization, Other)
  Sender: FDA-Public Use
  Company Number: PHEH2019US033564

PATIENT
  Age: 70 Year
  Sex: Female
  Weight: 46.72 kg

DRUGS (23)
  1. TYLENOL [Concomitant]
     Active Substance: ACETAMINOPHEN
     Indication: HEADACHE
     Dosage: 4 DF, PRN
     Route: 054
     Dates: start: 20190314
  2. ASPIRIN. [Concomitant]
     Active Substance: ASPIRIN
     Indication: PRODUCT USED FOR UNKNOWN INDICATION
     Dosage: 300 MG, QD
     Route: 054
     Dates: start: 20190314, end: 20190317
  3. ASPIRIN. [Concomitant]
     Active Substance: ASPIRIN
     Dosage: 300 MG, QD
     Route: 054
     Dates: start: 20190317, end: 20190317
  4. LACTULOSE. [Concomitant]
     Active Substance: LACTULOSE
     Indication: CONSTIPATION
     Dosage: 30 ML, PRN
     Route: 048
  5. WATER. [Concomitant]
     Active Substance: WATER
     Indication: PRODUCT USED FOR UNKNOWN INDICATION
     Dosage: 960 ML, QD (40 ML EVERY 1 HOUR)
     Route: 065
     Dates: start: 20190317
  6. ATORVASTATIN [Concomitant]
     Active Substance: ATORVASTATIN
     Indication: BLOOD CHOLESTEROL INCREASED
     Dosage: 1 DF, QD
     Route: 048
  7. TYLENOL [Concomitant]
     Active Substance: ACETAMINOPHEN
     Indication: PAIN
  8. LIPITOR [Concomitant]
     Active Substance: ATORVASTATIN CALCIUM
     Indication: PRODUCT USED FOR UNKNOWN INDICATION
     Dosage: 40 MG, QD (BEDTIME)
     Route: 048
     Dates: start: 20190314, end: 20190318
  9. PANTOPRAZOLE [Concomitant]
     Active Substance: PANTOPRAZOLE
     Indication: GASTRIC DISORDER
     Dosage: 40 MG, QD
     Route: 048
  10. HYCAMTIN [Suspect]
     Active Substance: TOPOTECAN HYDROCHLORIDE
     Indication: PRODUCT USED FOR UNKNOWN INDICATION
     Dosage: UNK
     Route: 065
  11. TYLENOL [Concomitant]
     Active Substance: ACETAMINOPHEN
     Indication: PYREXIA
  12. ASPIRIN. [Concomitant]
     Active Substance: ASPIRIN
     Indication: PRODUCT USED FOR UNKNOWN INDICATION
     Dosage: 4 DF, QD
     Route: 048
     Dates: start: 20190315, end: 20190319
  13. DECADRON [Concomitant]
     Active Substance: DEXAMETHASONE
     Indication: PRODUCT USED FOR UNKNOWN INDICATION
     Dosage: 2 MG, Q12H
     Route: 042
     Dates: start: 20190319
  14. SODIUM CHLORIDE. [Concomitant]
     Active Substance: SODIUM CHLORIDE
     Indication: PRODUCT USED FOR UNKNOWN INDICATION
     Dosage: 75 ML, QH
     Route: 042
     Dates: start: 20190314
  15. TYLENOL [Concomitant]
     Active Substance: ACETAMINOPHEN
     Indication: HEADACHE
     Dosage: 4 DF, PRN
     Route: 048
     Dates: start: 20190314, end: 20190315
  16. TYLENOL [Concomitant]
     Active Substance: ACETAMINOPHEN
     Indication: PYREXIA
  17. CELEBREX [Concomitant]
     Active Substance: CELECOXIB
     Indication: OSTEOPOROSIS
     Route: 065
  18. ALENDRONATE [Concomitant]
     Active Substance: ALENDRONATE SODIUM
     Indication: OSTEOPOROSIS
     Dosage: 1 DF, QW (ON WENESDAY) (TAKE WITH 8 OZ OF PLAIN WATER 30 MIN BEFORE FIRST FOOD)
     Route: 048
  19. TOPOTECAN [Concomitant]
     Active Substance: TOPOTECAN HYDROCHLORIDE
     Indication: PRODUCT USED FOR UNKNOWN INDICATION
     Dosage: 3 DF, QD 5 DAYS EVERY 3 WEEKS, THEN 1 WEEK OFF
     Route: 048
  20. CALTRATE WITH VITAMIN D [Concomitant]
     Active Substance: CALCIUM CARBONATE\CHOLECALCIFEROL
     Indication: BONE DISORDER
     Dosage: 1 DF, QD
     Route: 048
  21. TYLENOL [Concomitant]
     Active Substance: ACETAMINOPHEN
     Indication: PAIN
  22. ZOFRAN [Concomitant]
     Active Substance: ONDANSETRON HYDROCHLORIDE
     Indication: NAUSEA
     Dosage: 4 DF, PRN
     Route: 042
     Dates: start: 20190314
  23. OXYCODONE [Concomitant]
     Active Substance: OXYCODONE
     Indication: PAIN
     Dosage: 1 DF, Q8H
     Route: 048

REACTIONS (43)
  - Dysarthria [Unknown]
  - Blood albumin decreased [Unknown]
  - Abdominal pain [Unknown]
  - Haemoglobin decreased [Unknown]
  - Dysphagia [Unknown]
  - Neutrophil count increased [Unknown]
  - Blood creatinine decreased [Unknown]
  - Wheezing [Unknown]
  - Anxiety [Unknown]
  - Tachycardia [Unknown]
  - Cerebrovascular accident [Recovered/Resolved]
  - Pancytopenia [Unknown]
  - Cytopenia [Unknown]
  - Blood phosphorus decreased [Recovered/Resolved]
  - Brain stem infarction [Recovering/Resolving]
  - Carbon dioxide decreased [Unknown]
  - Constipation [Recovered/Resolved]
  - Oedema peripheral [Unknown]
  - White blood cell count decreased [Unknown]
  - Motor dysfunction [Unknown]
  - Hypoaesthesia [Recovering/Resolving]
  - Lymphocyte count decreased [Unknown]
  - Blood glucose increased [Unknown]
  - Haematocrit decreased [Unknown]
  - Aphasia [Unknown]
  - Immature granulocyte count increased [Unknown]
  - Blood calcium decreased [Unknown]
  - Decreased appetite [Unknown]
  - Blood pressure systolic decreased [Unknown]
  - Platelet count decreased [Unknown]
  - Paralysis [Unknown]
  - Speech disorder [Recovering/Resolving]
  - Depression [Unknown]
  - Heart rate increased [Unknown]
  - Drug intolerance [Unknown]
  - Confusional state [Unknown]
  - Neurologic neglect syndrome [Unknown]
  - Blood chloride increased [Unknown]
  - Asthenia [Unknown]
  - Weight decreased [Unknown]
  - Dyspnoea [Unknown]
  - Blood potassium decreased [Unknown]
  - Blood urea decreased [Unknown]

NARRATIVE: CASE EVENT DATE: 20190315
